FAERS Safety Report 5734616-7 (Version None)
Quarter: 2008Q2

REPORT INFORMATION
  Report Type: 
  Country: None (occurrence: None)
  Receive Date: 20080512
  Receipt Date: 20080501
  Transmission Date: 20081010
  Serious: Yes (Death)
  Sender: FDA-Public Use
  Company Number: GB-PURDUE-GBR_2008_0003990

PATIENT
  Sex: Female

DRUGS (1)
  1. OXYNORM INJECTION 10MG/ML [Suspect]
     Indication: ANALGESIA
     Route: 042

REACTIONS (2)
  - DISEASE PROGRESSION [None]
  - INJECTION SITE VESICLES [None]
